FAERS Safety Report 10102425 (Version 2)
Quarter: 2014Q2

REPORT INFORMATION
  Report Type: Other
  Country: US (occurrence: US)
  Receive Date: 20140424
  Receipt Date: 20140628
  Transmission Date: 20141212
  Serious: Yes (Hospitalization, Other)
  Sender: FDA-Public Use
  Company Number: US-GSKPPD-2014GSK000295

PATIENT
  Age: 57 Year
  Sex: Male
  Weight: 74.91 kg

DRUGS (4)
  1. AVANDIA [Suspect]
     Indication: DIABETES MELLITUS
     Route: 048
     Dates: start: 20050906, end: 20070525
  2. COZAAR [Concomitant]
     Route: 048
  3. METOPROLOL [Concomitant]
     Route: 048
  4. CRESTOR [Concomitant]
     Route: 048

REACTIONS (1)
  - Coronary arterial stent insertion [Recovered/Resolved]
